FAERS Safety Report 6140628-4 (Version None)
Quarter: 2009Q2

REPORT INFORMATION
  Report Type: 
  Country: None (occurrence: None)
  Receive Date: 20090402
  Receipt Date: 20090324
  Transmission Date: 20091009
  Serious: Yes (Other)
  Sender: FDA-Public Use
  Company Number: PL-WYE-H08736409

PATIENT
  Sex: Male

DRUGS (1)
  1. CONTROLOC [Suspect]
     Indication: DUODENAL ULCER HAEMORRHAGE
     Route: 042
     Dates: start: 20090128, end: 20090129

REACTIONS (1)
  - PHLEBITIS [None]
